FAERS Safety Report 5934301-2 (Version None)
Quarter: 2008Q4

REPORT INFORMATION
  Report Type: 
  Country: None (occurrence: None)
  Receive Date: 20081029
  Receipt Date: 20081021
  Transmission Date: 20090506
  Serious: Yes (Hospitalization, Other)
  Sender: FDA-Public Use
  Company Number: PHHY2008FI25504

PATIENT
  Sex: Female

DRUGS (1)
  1. LEPONEX [Suspect]
     Indication: MAJOR DEPRESSION
     Dosage: UNK
     Dates: start: 19980101

REACTIONS (5)
  - ABSCESS [None]
  - ABSCESS DRAINAGE [None]
  - OVERWEIGHT [None]
  - PAIN [None]
  - WEIGHT DECREASED [None]
